FAERS Safety Report 9414899 (Version 2)
Quarter: 2013Q3

REPORT INFORMATION
  Report Type: Spontaneous
  Country: US (occurrence: US)
  Receive Date: 20130723
  Receipt Date: 20130807
  Transmission Date: 20140515
  Serious: Yes (Other)
  Sender: FDA-Public Use
  Company Number: US-AMGEN-USASP2013050419

PATIENT
  Age: 51 Year
  Sex: Male
  Weight: 92.97 kg

DRUGS (3)
  1. ENBREL [Suspect]
     Indication: ANKYLOSING SPONDYLITIS
     Dosage: 50 MG, QWK
     Route: 058
     Dates: start: 201003, end: 20130630
  2. ADVAIR [Concomitant]
     Dosage: 100/50, UNK
  3. MULTITABS [Concomitant]
     Dosage: UNK

REACTIONS (4)
  - Rotator cuff syndrome [Recovered/Resolved]
  - Bunion [Recovered/Resolved]
  - Genital lesion [Unknown]
  - Herpes simplex [Recovered/Resolved]
